FAERS Safety Report 5364294-0 (Version None)
Quarter: 2007Q2

REPORT INFORMATION
  Report Type: 
  Country: None (occurrence: None)
  Receive Date: 20070618
  Receipt Date: 20070608
  Transmission Date: 20071010
  Serious: Yes (Life-Threatening, Other)
  Sender: FDA-Public Use
  Company Number: 07H-167-0312635

PATIENT
  Age: 22 Year
  Sex: Male

DRUGS (3)
  1. ONDANSETRON HCL [Suspect]
     Indication: VOMITING
     Dosage: 4 MG, ONCE, INTRAVENOUS
     Route: 042
     Dates: start: 20070321, end: 20070321
  2. AMOXIL [Suspect]
     Dosage: 500 MG, ONCE, INTRAVENOUS
     Route: 042
     Dates: start: 20070321, end: 20070321
  3. FENTANYL [Suspect]
     Indication: INDUCTION OF ANAESTHESIA
     Dosage: 100 MCG, ONCE, INTRAVENOUS
     Route: 042
     Dates: start: 20070321, end: 20070321

REACTIONS (7)
  - BRADYCARDIA [None]
  - DYSKINESIA [None]
  - EYE ROLLING [None]
  - FLUSHING [None]
  - HYPERHIDROSIS [None]
  - LOSS OF CONSCIOUSNESS [None]
  - RESPIRATORY ARREST [None]
